FAERS Safety Report 8018917-8 (Version None)
Quarter: 2012Q1

REPORT INFORMATION
  Report Type: 
  Country: None (occurrence: None)
  Receive Date: 20120103
  Receipt Date: 20111227
  Transmission Date: 20120608
  Serious: Yes (Life-Threatening)
  Sender: FDA-Public Use
  Company Number: JP-SANOFI-AVENTIS-2011SA076568

PATIENT
  Age: 52 Year
  Sex: Male
  Weight: 62 kg

DRUGS (4)
  1. PLAVIX [Suspect]
     Indication: TRANSIENT ISCHAEMIC ATTACK
     Route: 048
     Dates: start: 20111008, end: 20111011
  2. PLAVIX [Suspect]
     Route: 048
     Dates: start: 20111026, end: 20111026
  3. TELMISARTAN [Suspect]
     Indication: HYPERTENSION
     Route: 048
     Dates: start: 20111008, end: 20111011
  4. TELMISARTAN [Suspect]
     Route: 048
     Dates: start: 20111026, end: 20111026

REACTIONS (15)
  - DEHYDRATION [None]
  - SHOCK [None]
  - ACUTE PRERENAL FAILURE [None]
  - RENAL ATROPHY [None]
  - VOMITING [None]
  - CIRCULATORY COLLAPSE [None]
  - HYPERCALCAEMIA [None]
  - DIARRHOEA [None]
  - RENAL FAILURE ACUTE [None]
  - HYPOPHAGIA [None]
  - HYPERAMMONAEMIA [None]
  - HYPOVOLAEMIC SHOCK [None]
  - GASTRIC INFECTION [None]
  - OLIGURIA [None]
  - LACTIC ACIDOSIS [None]
